FAERS Safety Report 6577967-9 (Version None)
Quarter: 2010Q1

REPORT INFORMATION
  Report Type: 
  Country: None (occurrence: None)
  Receive Date: 20100211
  Receipt Date: 20100201
  Transmission Date: 20100710
  Serious: Yes (Hospitalization)
  Sender: FDA-Public Use
  Company Number: US-ALLERGAN-1001330US

PATIENT
  Age: 40 Year
  Sex: Male

DRUGS (6)
  1. BOTULINUM TOXIN TYPE A [Suspect]
     Indication: TORTICOLLIS
     Dosage: 260 UNITS, SINGLE
     Route: 030
     Dates: start: 20091119, end: 20091119
  2. ZANAFLEX [Concomitant]
     Indication: MUSCLE SPASTICITY
     Dosage: 4 MG, TID
     Route: 048
  3. PERCOCET [Concomitant]
     Indication: PAIN
     Dosage: UNK
     Route: 048
  4. CYMBALTA [Concomitant]
     Indication: ANXIETY
     Dosage: 60 MG, QD
     Route: 048
  5. ASPART INSULIN [Concomitant]
     Indication: DIABETES MELLITUS
     Dosage: UNK
     Route: 058
  6. LANTUS [Concomitant]
     Indication: DIABETES MELLITUS
     Dosage: 40 UNITS, QD
     Route: 058

REACTIONS (2)
  - DEEP VEIN THROMBOSIS [None]
  - URINARY TRACT INFECTION [None]
